FAERS Safety Report 7442842-4 (Version None)
Quarter: 2011Q2

REPORT INFORMATION
  Report Type: 
  Country: None (occurrence: None)
  Receive Date: 20110428
  Receipt Date: 20110330
  Transmission Date: 20111010
  Serious: No
  Sender: FDA-Public Use
  Company Number: US-BAYER-2011-029641

PATIENT
  Age: 53 Year
  Sex: Male
  Weight: 105 kg

DRUGS (3)
  1. ALEVE (CAPLET) [Suspect]
     Dosage: 440 MG, QD. BOTTLE COUNT 250S
     Route: 048
  2. ONE A DAY [Concomitant]
  3. LUPUS MEDICATION [Concomitant]
     Indication: LUPUS-LIKE SYNDROME

REACTIONS (2)
  - FEELING ABNORMAL [None]
  - NAUSEA [None]
